FAERS Safety Report 4850523-6 (Version None)
Quarter: 2005Q4

REPORT INFORMATION
  Report Type: 
  Country: None (occurrence: None)
  Receive Date: 20051212
  Receipt Date: 20051128
  Transmission Date: 20060501
  Serious: Yes (Hospitalization)
  Sender: FDA-Public Use
  Company Number: FR-RB-2390-2005

PATIENT
  Age: 40 Year
  Sex: Male

DRUGS (1)
  1. BUPRENORPHINE HCL [Suspect]
     Indication: DRUG DEPENDENCE
     Route: 048
     Dates: start: 19960301

REACTIONS (7)
  - BLOOD CULTURE NEGATIVE [None]
  - GRANULOCYTOSIS [None]
  - HEPATIC CYST [None]
  - HYPERCHOLESTEROLAEMIA [None]
  - INFLAMMATION [None]
  - POLYCYTHAEMIA [None]
  - WEIGHT DECREASED [None]
